FAERS Safety Report 18588937 (Version 1)
Quarter: 2020Q4

REPORT INFORMATION
  Report Type: Spontaneous
  Country: IT (occurrence: IT)
  Receive Date: 20201208
  Receipt Date: 20201208
  Transmission Date: 20210114
  Serious: No
  Sender: FDA-Public Use
  Company Number: IT-LUPIN PHARMACEUTICALS INC.-2020-09796

PATIENT
  Age: 62 Year
  Sex: Female

DRUGS (10)
  1. AMITRIPTYLINE [Suspect]
     Active Substance: AMITRIPTYLINE
     Dosage: 35 MILLIGRAM, QD (CONVENTIONAL MEDICAL MANAGEMENT)
     Route: 065
  2. PANTOPRAZOLE [Concomitant]
     Active Substance: PANTOPRAZOLE
     Indication: PRODUCT USED FOR UNKNOWN INDICATION
     Dosage: 20 MILLIGRAM, QD
     Route: 065
  3. PREGABALIN. [Suspect]
     Active Substance: PREGABALIN
     Indication: TRIGEMINAL NERVE DISORDER
     Dosage: 75 MILLIGRAM (CONVENTIONAL MEDICAL MANAGEMENT)
     Route: 065
  4. MORPHINE [Concomitant]
     Active Substance: MORPHINE
     Indication: PRODUCT USED FOR UNKNOWN INDICATION
     Dosage: MORPHINE PUMP IMPLANT
     Route: 037
     Dates: start: 200801, end: 200803
  5. AMITRIPTYLINE [Suspect]
     Active Substance: AMITRIPTYLINE
     Indication: TRIGEMINAL NERVE DISORDER
     Dosage: 30 MILLIGRAM, QD (CONVENTIONAL MEDICAL MANAGEMENT)
     Route: 065
  6. GABAPENTIN. [Suspect]
     Active Substance: GABAPENTIN
     Indication: TRIGEMINAL NERVE ABLATION
     Dosage: 300 MILLIGRAM, TID (CONVENTIONAL MEDICAL MANAGEMENT)
     Route: 065
  7. CARBAMAZEPINE. [Suspect]
     Active Substance: CARBAMAZEPINE
     Indication: TRIGEMINAL NERVE DISORDER
     Dosage: 200 MILLIGRAM, TID (CONVENTIONAL MEDICAL MANAGEMENT)
     Route: 065
  8. ZICONOTIDE [Concomitant]
     Active Substance: ZICONOTIDE
     Indication: PRODUCT USED FOR UNKNOWN INDICATION
     Dosage: UNK
     Route: 065
  9. LACOSAMIDE. [Suspect]
     Active Substance: LACOSAMIDE
     Indication: TRIGEMINAL NERVE DISORDER
     Dosage: 50 MILLIGRAM (1 CP; CONVENTIONAL MEDICAL MANAGEMENT)
     Route: 065
  10. ALPRAZOLAM. [Suspect]
     Active Substance: ALPRAZOLAM
     Indication: TRIGEMINAL NERVE DISORDER
     Dosage: 0.25 MILLIGRAM (CONVENTIONAL MEDICAL MANAGEMENT)
     Route: 065

REACTIONS (1)
  - Drug ineffective [Unknown]
